FAERS Safety Report 24565506 (Version 1)
Quarter: 2024Q4

REPORT INFORMATION
  Report Type: Spontaneous
  Country: US (occurrence: None)
  Receive Date: 20241029
  Receipt Date: 20241029
  Transmission Date: 20250115
  Serious: Yes (Other)
  Sender: Public
  Company Number: None

PATIENT
  Age: 76 Year
  Sex: Male
  Weight: 63.9 kg

DRUGS (3)
  1. PRIVIGEN [Suspect]
     Active Substance: HUMAN IMMUNOGLOBULIN G
     Indication: Demyelination
     Dosage: OTHER FREQUENCY : Q2WEEKS;?
     Route: 041
     Dates: end: 20240726
  2. NAPROXEN [Concomitant]
     Active Substance: NAPROXEN
  3. CLARITIN [Concomitant]
     Active Substance: LORATADINE

REACTIONS (1)
  - Renal failure [None]

NARRATIVE: CASE EVENT DATE: 20240726
